FAERS Safety Report 20156414 (Version 2)
Quarter: 2021Q4

REPORT INFORMATION
  Report Type: Report from Study
  Country: US (occurrence: US)
  Receive Date: 20211207
  Receipt Date: 20211229
  Transmission Date: 20220303
  Serious: Yes (Hospitalization, Other)
  Sender: FDA-Public Use
  Company Number: US-BIOGEN-2021BI01074643

PATIENT
  Age: 58 Year
  Sex: Male
  Weight: 102.15 kg

DRUGS (2)
  1. VUMERITY [Suspect]
     Active Substance: DIROXIMEL FUMARATE
     Indication: Multiple sclerosis
     Route: 048
     Dates: start: 20210625, end: 20211123
  2. VUMERITY [Suspect]
     Active Substance: DIROXIMEL FUMARATE
     Route: 048
     Dates: start: 202107, end: 20211123

REACTIONS (8)
  - Staring [Recovered/Resolved]
  - Aphasia [Recovered/Resolved]
  - Osteoarthritis [Unknown]
  - Post procedural complication [Recovered/Resolved]
  - Hypoaesthesia [Unknown]
  - White blood cell count decreased [Recovered/Resolved]
  - Muscular weakness [Recovered/Resolved]
  - Drug ineffective [Unknown]

NARRATIVE: CASE EVENT DATE: 20210701
